FAERS Safety Report 17350439 (Version 2)
Quarter: 2020Q1

REPORT INFORMATION
  Report Type: Spontaneous
  Country: FR (occurrence: FR)
  Receive Date: 20200130
  Receipt Date: 20200204
  Transmission Date: 20200409
  Serious: Yes (Hospitalization, Other)
  Sender: FDA-Public Use
  Company Number: FR-SA-2020SA004798

PATIENT
  Age: 28 Year
  Sex: Male

DRUGS (1)
  1. ALPROLIX [Suspect]
     Active Substance: EFTRENONACOG ALFA
     Indication: FACTOR IX DEFICIENCY
     Dosage: 6000 IU, Q10D
     Route: 042
     Dates: start: 20191220

REACTIONS (3)
  - Haematuria [Recovered/Resolved]
  - Urinary bladder haemorrhage [Unknown]
  - Renal colic [Unknown]

NARRATIVE: CASE EVENT DATE: 20191228
